FAERS Safety Report 9373774 (Version 2)
Quarter: 2013Q3

REPORT INFORMATION
  Report Type: Spontaneous
  Country: DE (occurrence: DE)
  Receive Date: 20130628
  Receipt Date: 20130807
  Transmission Date: 20140515
  Serious: Yes (Hospitalization, Other)
  Sender: FDA-Public Use
  Company Number: DE-ASTRAZENECA-2013SE48277

PATIENT
  Age: 901 Month
  Sex: Male
  Weight: 88 kg

DRUGS (1)
  1. BRILIQUE [Suspect]
     Route: 048

REACTIONS (2)
  - Hypersensitivity vasculitis [Recovered/Resolved]
  - Basal cell carcinoma [Unknown]
